FAERS Safety Report 25772693 (Version 1)
Quarter: 2025Q3

REPORT INFORMATION
  Report Type: Spontaneous
  Country: YE (occurrence: YE)
  Receive Date: 20250908
  Receipt Date: 20250908
  Transmission Date: 20251021
  Serious: Yes (Other)
  Sender: STRIDES
  Company Number: YE-MLMSERVICE-20250815-PI613943-00117-3

PATIENT
  Age: 55 Year
  Sex: Female

DRUGS (3)
  1. PREDNISOLONE [Suspect]
     Active Substance: PREDNISOLONE
     Indication: Steroid therapy
     Route: 048
  2. PREDNISOLONE [Suspect]
     Active Substance: PREDNISOLONE
     Route: 065
  3. DEXAMETHASONE [Suspect]
     Active Substance: DEXAMETHASONE
     Indication: Cough
     Route: 065

REACTIONS (2)
  - Adrenal insufficiency [Not Recovered/Not Resolved]
  - Hypothalamic pituitary adrenal axis suppression [Not Recovered/Not Resolved]
